FAERS Safety Report 5146962-9 (Version None)
Quarter: 2006Q4

REPORT INFORMATION
  Report Type: 
  Country: None (occurrence: None)
  Receive Date: 20061109
  Receipt Date: 20061030
  Transmission Date: 20070319
  Serious: Yes (Other)
  Sender: FDA-Public Use
  Company Number: US-SANOFI-SYNTHELABO-A03200606544

PATIENT
  Sex: Female

DRUGS (3)
  1. AMBIEN [Suspect]
     Indication: INSOMNIA
     Route: 048
     Dates: start: 20040101, end: 20060201
  2. LASIX [Concomitant]
     Dosage: UNK
     Route: 048
  3. CYMBALTA [Concomitant]
     Dosage: UNK
     Route: 048

REACTIONS (5)
  - AMNESIA [None]
  - EATING DISORDER [None]
  - ROAD TRAFFIC ACCIDENT [None]
  - SKIN LACERATION [None]
  - SLEEP WALKING [None]
